FAERS Safety Report 4692265-6 (Version None)
Quarter: 2005Q2

REPORT INFORMATION
  Report Type: 
  Country: None (occurrence: None)
  Receive Date: 20050614
  Receipt Date: 20050601
  Transmission Date: 20051028
  Serious: Yes (Other)
  Sender: FDA-Public Use
  Company Number: 200508023

PATIENT
  Age: 55 Year
  Sex: Female

DRUGS (2)
  1. CELEBREX [Suspect]
     Indication: BACK PAIN
     Dosage: 200 MG (100 MG 2 IN 1 D) ORAL
     Route: 048
     Dates: start: 20000101, end: 20000101
  2. PROPOFAN (CAFFIENE, CARBASALATE CALCIUM, CHLORPHENIRAMINE MALEATE, DEX [Concomitant]

REACTIONS (1)
  - OESOPHAGEAL ULCER [None]
